FAERS Safety Report 4428110-3 (Version None)
Quarter: 2004Q3

REPORT INFORMATION
  Report Type: 
  Country: None (occurrence: None)
  Receive Date: 20040726
  Receipt Date: 20040422
  Transmission Date: 20050211
  Serious: No
  Sender: FDA-Public Use
  Company Number: USA030844100

PATIENT
  Age: 53 Year
  Sex: Female

DRUGS (2)
  1. FORTEO [Suspect]
     Indication: OSTEOPOROSIS
     Dates: start: 20030812
  2. PRAVACHOL [Concomitant]

REACTIONS (5)
  - DYSGEUSIA [None]
  - INJECTION SITE ERYTHEMA [None]
  - INJECTION SITE HAEMORRHAGE [None]
  - PAIN IN EXTREMITY [None]
  - SINUSITIS [None]
